FAERS Safety Report 18761372 (Version 1)
Quarter: 2021Q1

REPORT INFORMATION
  Report Type: Spontaneous
  Country: US (occurrence: US)
  Receive Date: 20210119
  Receipt Date: 20210119
  Transmission Date: 20210419
  Serious: Yes (Hospitalization)
  Sender: FDA-Public Use
  Company Number: None

PATIENT
  Age: 58 Year
  Sex: Female

DRUGS (12)
  1. ENVARSUS XR [Concomitant]
     Active Substance: TACROLIMUS
  2. HYDROCYZ HCL [Concomitant]
  3. OCALIVA [Concomitant]
     Active Substance: OBETICHOLIC ACID
  4. MYCOPHENOLIC [Concomitant]
     Active Substance: MYCOPHENOLIC ACID
  5. NIFEDIPINE. [Concomitant]
     Active Substance: NIFEDIPINE
  6. URSODIOL. [Concomitant]
     Active Substance: URSODIOL
  7. STIMULANT [Concomitant]
     Active Substance: UNSPECIFIED INGREDIENT
  8. HYOSCYAMINE. [Concomitant]
     Active Substance: HYOSCYAMINE
  9. CARVEDILOL. [Concomitant]
     Active Substance: CARVEDILOL
  10. TIZANIDINE. [Concomitant]
     Active Substance: TIZANIDINE
  11. ENBREL [Suspect]
     Active Substance: ETANERCEPT
     Indication: RHEUMATOID ARTHRITIS
     Route: 058
     Dates: start: 20190926
  12. SMZ?TMP [Concomitant]
     Active Substance: SULFAMETHOXAZOLE\TRIMETHOPRIM

REACTIONS (1)
  - COVID-19 [None]

NARRATIVE: CASE EVENT DATE: 20201214
